FAERS Safety Report 19912069 (Version 1)
Quarter: 2021Q4

REPORT INFORMATION
  Report Type: Spontaneous
  Country: FR (occurrence: FR)
  Receive Date: 20211004
  Receipt Date: 20211004
  Transmission Date: 20220303
  Serious: Yes (Hospitalization, Other)
  Sender: FDA-Public Use
  Company Number: None

PATIENT
  Age: 78 Year
  Sex: Male
  Weight: 78 kg

DRUGS (16)
  1. AMLODIPINE [Suspect]
     Active Substance: AMLODIPINE BESYLATE
     Indication: Hypertension
     Dosage: 10 MG, QD
     Route: 048
     Dates: start: 20191223, end: 20200203
  2. ALLOPURINOL [Suspect]
     Active Substance: ALLOPURINOL
     Indication: Gout
     Dosage: 200 MG, QD
     Route: 048
     Dates: start: 20200201, end: 20200203
  3. PREGABALIN [Suspect]
     Active Substance: PREGABALIN
     Indication: Neuralgia
     Dosage: 100 MG, QD
     Route: 048
     Dates: start: 201912, end: 20200203
  4. BETAHISTINE [Suspect]
     Active Substance: BETAHISTINE
     Indication: Dizziness
     Dosage: 24 MG, QD
     Route: 048
     Dates: start: 20200120, end: 20200203
  5. TRAMADOL HYDROCHLORIDE [Suspect]
     Active Substance: TRAMADOL HYDROCHLORIDE
     Indication: Pain
     Dosage: 10 DROP, QD
     Route: 048
     Dates: start: 201912, end: 20200203
  6. ESOMEPRAZOLE MYLAN                 /01479302/ [Concomitant]
     Indication: Barrett^s oesophagus
     Dosage: UNK
     Dates: start: 2018, end: 20200203
  7. FOLIC ACID [Concomitant]
     Active Substance: FOLIC ACID
     Indication: Anaemia folate deficiency
     Dosage: UNK
     Dates: start: 2018
  8. LERCANIDIPINE [Concomitant]
     Active Substance: LERCANIDIPINE
     Indication: Hypertension
     Dosage: UNK
     Dates: start: 2018, end: 20191223
  9. ATORVASTATIN [Concomitant]
     Active Substance: ATORVASTATIN
     Indication: Dyslipidaemia
     Dosage: UNK
     Dates: start: 2018, end: 20200203
  10. CLOPIDOGREL [Concomitant]
     Active Substance: CLOPIDOGREL BISULFATE
     Indication: Hypertension
     Dosage: UNK
  11. CHOLECALCIFEROL MYLAN [Concomitant]
     Indication: Vitamin D deficiency
     Dosage: UNK
  12. BISOPROLOL [Concomitant]
     Active Substance: BISOPROLOL
     Indication: Hypertension
     Dosage: UNK
     Dates: end: 20200203
  13. DOLIPRANE [Concomitant]
     Active Substance: ACETAMINOPHEN
     Indication: Pain
     Dosage: UNK
     Dates: start: 2018
  14. IRBESARTAN [Concomitant]
     Active Substance: IRBESARTAN
     Indication: Hypertension
     Dosage: UNK
     Dates: start: 2018, end: 20200203
  15. FEBUXOSTAT [Concomitant]
     Active Substance: FEBUXOSTAT
     Indication: Gout
     Dosage: UNK
     Dates: start: 2018, end: 20200203
  16. COLCHICINE\DICYCLOMINE HYDROCHLORIDE [Concomitant]
     Active Substance: COLCHICINE\DICYCLOMINE HYDROCHLORIDE
     Indication: Gout
     Dosage: UNK
     Dates: start: 2018, end: 20200203

REACTIONS (1)
  - Toxic epidermal necrolysis [Recovered/Resolved]

NARRATIVE: CASE EVENT DATE: 20200202
